FAERS Safety Report 8424122-3 (Version None)
Quarter: 2012Q2

REPORT INFORMATION
  Report Type: 
  Country: None (occurrence: None)
  Receive Date: 20120608
  Receipt Date: 20120424
  Transmission Date: 20120825
  Serious: No
  Sender: FDA-Public Use
  Company Number: US-ASTRAZENECA-2012SE26792

PATIENT
  Age: 79 Year
  Sex: Male

DRUGS (6)
  1. PULMICORT [Suspect]
     Indication: PNEUMONIA
     Route: 055
     Dates: start: 20120306
  2. GLIPIZIDE [Concomitant]
  3. OMEPRAZOLE [Concomitant]
  4. BROVANA [Suspect]
     Indication: PNEUMONIA
     Dosage: 15MCG, TWICE DAILY
     Route: 065
     Dates: start: 20120306
  5. OXYGEN [Concomitant]
  6. METFORMIN HYDROCHLORIDE [Concomitant]

REACTIONS (3)
  - SOMNOLENCE [None]
  - FATIGUE [None]
  - OFF LABEL USE [None]
